FAERS Safety Report 24750997 (Version 1)
Quarter: 2024Q4

REPORT INFORMATION
  Report Type: Report from Study
  Country: US (occurrence: US)
  Receive Date: 20241219
  Receipt Date: 20241219
  Transmission Date: 20250114
  Serious: Yes (Other)
  Sender: ABBVIE
  Company Number: US-ABBVIE-6049635

PATIENT
  Age: 26 Year
  Sex: Female

DRUGS (1)
  1. RINVOQ [Suspect]
     Active Substance: UPADACITINIB
     Indication: Psoriasis
     Dosage: LAST ADMIN DOSE DATE: 2024
     Route: 048
     Dates: start: 20241023

REACTIONS (1)
  - Gastrointestinal scarring [Unknown]

NARRATIVE: CASE EVENT DATE: 20241210
